FAERS Safety Report 8212624-4 (Version None)
Quarter: 2012Q1

REPORT INFORMATION
  Report Type: 
  Country: None (occurrence: None)
  Receive Date: 20120315
  Receipt Date: 20120307
  Transmission Date: 20120608
  Serious: Yes (Other)
  Sender: FDA-Public Use
  Company Number: US-AMGEN-USASP2012010177

PATIENT
  Age: 64 Year
  Sex: Female

DRUGS (2)
  1. ENBREL [Suspect]
     Indication: PSORIASIS
  2. ENBREL [Suspect]
     Indication: RHEUMATOID ARTHRITIS
     Dosage: 50 MG, QWK

REACTIONS (9)
  - DEPRESSION [None]
  - DRY SKIN [None]
  - POLLAKIURIA [None]
  - BURN INFECTION [None]
  - URINARY INCONTINENCE [None]
  - DIARRHOEA [None]
  - SKIN HAEMORRHAGE [None]
  - DRUG INEFFECTIVE [None]
  - CYSTITIS [None]
